FAERS Safety Report 9807277 (Version 1)
Quarter: 2014Q1

REPORT INFORMATION
  Report Type: Spontaneous
  Country: US (occurrence: US)
  Receive Date: 20140110
  Receipt Date: 20140110
  Transmission Date: 20141002
  Serious: No
  Sender: FDA-Public Use
  Company Number: US-BIOGENIDEC-2014BI002484

PATIENT
  Sex: Female

DRUGS (21)
  1. AVONEX [Suspect]
     Indication: MULTIPLE SCLEROSIS
     Route: 030
     Dates: start: 20070312
  2. ACIPHEX [Concomitant]
  3. ARTIFICIAL TEARS [Concomitant]
  4. ASPIRIN [Concomitant]
  5. BACLOFEN [Concomitant]
  6. BENADRYL ALLERGY [Concomitant]
  7. BUTRANS [Concomitant]
  8. CALCIUM D [Concomitant]
  9. CARBAMAZEPINE ER [Concomitant]
  10. CITALOPRAM HYDROHLORIDE [Concomitant]
  11. CLONAZEPAM [Concomitant]
  12. LACTULOSE [Concomitant]
  13. LEVOTHYROXINE SODIUM [Concomitant]
  14. LIPITOR [Concomitant]
  15. LOPERAMIDE HYDROCHLORID [Concomitant]
  16. LOSARTAN POTASSIUM [Concomitant]
  17. LYRICA [Concomitant]
  18. METFORMIN HYDROCHLORIDE [Concomitant]
  19. NITRO-DUR [Concomitant]
  20. NORTRIPTYLINE HYDROCHLORIDE [Concomitant]
  21. OMEPRAZOLE [Concomitant]

REACTIONS (1)
  - Disease progression [Unknown]
